FAERS Safety Report 7486870-1 (Version None)
Quarter: 2011Q2

REPORT INFORMATION
  Report Type: 
  Country: None (occurrence: None)
  Receive Date: 20110517
  Receipt Date: 20110510
  Transmission Date: 20111010
  Serious: Yes (Hospitalization)
  Sender: FDA-Public Use
  Company Number: US-US-EMD SERONO, INC.-7057174

PATIENT
  Sex: Female
  Weight: 84 kg

DRUGS (2)
  1. REBIF [Suspect]
     Indication: MULTIPLE SCLEROSIS
     Route: 058
     Dates: start: 20110405, end: 20110506
  2. IBUPROFEN [Concomitant]
     Indication: PREMEDICATION

REACTIONS (7)
  - FATIGUE [None]
  - DIZZINESS [None]
  - PAIN [None]
  - MULTIPLE SCLEROSIS RELAPSE [None]
  - NERVOUSNESS [None]
  - PAIN IN EXTREMITY [None]
  - HEADACHE [None]
